FAERS Safety Report 6618665-2 (Version None)
Quarter: 2010Q1

REPORT INFORMATION
  Report Type: 
  Country: None (occurrence: None)
  Receive Date: 20100305
  Receipt Date: 20100305
  Transmission Date: 20100710
  Serious: Yes (Hospitalization, Disabling)
  Sender: FDA-Public Use
  Company Number: None

PATIENT
  Sex: Male
  Weight: 77.1115 kg

DRUGS (2)
  1. GENTAMYCIN SULFATE [Suspect]
     Indication: BLOOD DISORDER
     Dosage: 8 MG. 3 X DAY IV BLOOD INFECTION INITIALLY THEN ENDOCARDIST
     Route: 042
  2. GENTAMYCIN SULFATE [Suspect]
     Indication: INFECTION
     Dosage: 8 MG. 3 X DAY IV BLOOD INFECTION INITIALLY THEN ENDOCARDIST
     Route: 042

REACTIONS (2)
  - HEARING IMPAIRED [None]
  - VESTIBULAR DISORDER [None]
